FAERS Safety Report 5283392-3 (Version None)
Quarter: 2007Q2

REPORT INFORMATION
  Report Type: 
  Country: None (occurrence: None)
  Receive Date: 20070402
  Receipt Date: 20070326
  Transmission Date: 20071010
  Serious: Yes (Death)
  Sender: FDA-Public Use
  Company Number: FR-AVENTIS-200711053FR

PATIENT
  Age: 71 Year
  Sex: Female

DRUGS (14)
  1. OFLOCET                            /00731801/ [Suspect]
     Route: 048
     Dates: start: 20061004, end: 20061014
  2. LASILIX                            /00032601/ [Suspect]
     Route: 048
     Dates: start: 20060915, end: 20061013
  3. NEURONTIN [Suspect]
     Route: 048
     Dates: end: 20061101
  4. ARANESP [Suspect]
     Route: 058
  5. NEXIUM [Suspect]
     Route: 048
     Dates: start: 20061007, end: 20061011
  6. MINISINTROM [Suspect]
     Route: 048
     Dates: end: 20061031
  7. LEVOTHYROXINE SODIUM [Concomitant]
     Route: 048
     Dates: end: 20061101
  8. BACTRIM [Concomitant]
  9. LODALES [Concomitant]
  10. COZAAR [Concomitant]
  11. VALACYCLOVIR HCL [Concomitant]
  12. INIPOMP                            /01263201/ [Concomitant]
     Dates: end: 20060908
  13. ORGAMETRIL [Concomitant]
  14. GAVISCON                           /01405501/ [Concomitant]

REACTIONS (1)
  - TOXIC EPIDERMAL NECROLYSIS [None]
